FAERS Safety Report 4841817-9 (Version None)
Quarter: 2005Q4

REPORT INFORMATION
  Report Type: 
  Country: None (occurrence: None)
  Receive Date: 20051130
  Receipt Date: 20051007
  Transmission Date: 20060501
  Serious: Yes (Life-Threatening, Hospitalization)
  Sender: FDA-Public Use
  Company Number: PHBS2005JP14958

PATIENT
  Age: 72 Year
  Sex: Female
  Weight: 72 kg

DRUGS (9)
  1. GLEEVEC [Suspect]
     Indication: CHRONIC MYELOID LEUKAEMIA
     Dosage: 400 MG, QD
     Route: 048
     Dates: start: 20020305, end: 20020314
  2. GLEEVEC [Suspect]
     Dosage: 300 MG, QD
     Route: 048
     Dates: start: 20020315, end: 20020326
  3. GLEEVEC [Suspect]
     Dosage: 200 MG, QD
     Route: 048
     Dates: start: 20020327, end: 20021210
  4. GLEEVEC [Suspect]
     Dosage: 300 MG/D
     Route: 048
     Dates: start: 20021211
  5. HYDREA [Suspect]
     Indication: CHRONIC MYELOID LEUKAEMIA
     Dosage: 1000 MG/D
     Route: 048
     Dates: start: 19991126, end: 19991212
  6. HYDREA [Suspect]
     Dosage: 1000 MG/D
     Route: 048
     Dates: start: 20000105, end: 20000119
  7. HYDREA [Suspect]
     Dosage: 500 MG, BID
     Route: 048
     Dates: start: 20010619, end: 20011127
  8. HYDREA [Suspect]
     Dosage: 500 MG, TID
     Route: 048
     Dates: start: 20011128, end: 20020305
  9. INTRON A [Suspect]
     Indication: CHRONIC MYELOID LEUKAEMIA
     Dosage: 6 MIU/D
     Route: 058
     Dates: start: 19991213, end: 20010611

REACTIONS (6)
  - ENDOMETRIAL HYPERPLASIA [None]
  - HYSTEROSALPINGO-OOPHORECTOMY [None]
  - LYMPHADENECTOMY [None]
  - METRORRHAGIA [None]
  - UTERINE CANCER [None]
  - UTERINE DILATION AND CURETTAGE [None]
